FAERS Safety Report 19588904 (Version 3)
Quarter: 2024Q1

REPORT INFORMATION
  Report Type: Other
  Country: US (occurrence: None)
  Receive Date: 20210721
  Receipt Date: 20240219
  Transmission Date: 20240409
  Serious: Yes (Other)
  Sender: FDA-Public Use
  Company Number: US-ROCHE-2871998

PATIENT
  Age: 75 Year
  Sex: Female

DRUGS (14)
  1. ACTEMRA [Suspect]
     Active Substance: TOCILIZUMAB
     Indication: Autoimmune disorder
     Dosage: STRENGTH: 162 MG/0.9 ML
     Route: 058
  2. ACTEMRA [Suspect]
     Active Substance: TOCILIZUMAB
     Indication: Giant cell arteritis
     Dosage: ONCE IN 4-5 WEEKS
     Route: 058
  3. ACETAMINOPHEN [Concomitant]
     Active Substance: ACETAMINOPHEN
  4. BIOTIN [Concomitant]
     Active Substance: BIOTIN
  5. MISOPROSTOL [Concomitant]
     Active Substance: MISOPROSTOL
  6. CLOBETASOL [Concomitant]
     Active Substance: CLOBETASOL
  7. METOPROLOL TARTRATE [Concomitant]
     Active Substance: METOPROLOL TARTRATE
  8. LOSARTAN [Concomitant]
     Active Substance: LOSARTAN
  9. ESTRADIOL [Concomitant]
     Active Substance: ESTRADIOL
  10. FAMOTIDINE [Concomitant]
     Active Substance: FAMOTIDINE
  11. CALCIUM [Concomitant]
     Active Substance: CALCIUM
  12. DICLOFENAC POTASSIUM [Concomitant]
     Active Substance: DICLOFENAC POTASSIUM
     Dates: start: 20230919
  13. PREDNISONE [Concomitant]
     Active Substance: PREDNISONE
  14. VALIUM [Concomitant]
     Active Substance: DIAZEPAM

REACTIONS (22)
  - Visual impairment [Unknown]
  - Blindness unilateral [Unknown]
  - Neck pain [Unknown]
  - Arthralgia [Unknown]
  - Fatigue [Unknown]
  - Full blood count abnormal [Unknown]
  - Back pain [Unknown]
  - Headache [Unknown]
  - Osteoporosis [Unknown]
  - Blood pressure increased [Unknown]
  - Gait disturbance [Unknown]
  - Insomnia [Unknown]
  - Anxiety [Unknown]
  - Hypoaesthesia [Unknown]
  - Abdominal pain [Unknown]
  - Gastrooesophageal reflux disease [Unknown]
  - Aortic dissection [Unknown]
  - Cough [Unknown]
  - Intervertebral disc degeneration [Unknown]
  - Trigger finger [Unknown]
  - Arrhythmia [Unknown]
  - Off label use [Unknown]

NARRATIVE: CASE EVENT DATE: 20210907
